FAERS Safety Report 8170062-7 (Version None)
Quarter: 2012Q1

REPORT INFORMATION
  Report Type: 
  Country: None (occurrence: None)
  Receive Date: 20120106
  Receipt Date: 20110302
  Transmission Date: 20120608
  Serious: No
  Sender: FDA-Public Use
  Company Number: 20110168

PATIENT
  Age: 41 Year
  Sex: Female

DRUGS (1)
  1. VENOFER [Suspect]
     Indication: ANAEMIA
     Dosage: 100 MG OVER 7-8 MIN.
     Dates: start: 20110222, end: 20110222

REACTIONS (2)
  - ANGIOEDEMA [None]
  - SWELLING FACE [None]
